FAERS Safety Report 8925759 (Version 1)
Quarter: 2012Q4

REPORT INFORMATION
  Report Type: 
  Country: TR (occurrence: TR)
  Receive Date: 20121126
  Receipt Date: 20121126
  Transmission Date: 20130627
  Serious: Yes (Other)
  Sender: FDA-Public Use
  Company Number: TR-ROCHE-1159076

PATIENT
  Age: 19 Year
  Sex: Female

DRUGS (1)
  1. ROACCUTANE [Suspect]
     Indication: ACNE
     Route: 048

REACTIONS (2)
  - Retinal haemorrhage [Recovered/Resolved]
  - Blindness unilateral [Recovering/Resolving]
